FAERS Safety Report 4389923-X (Version None)
Quarter: 2004Q2

REPORT INFORMATION
  Report Type: 
  Country: None (occurrence: None)
  Receive Date: 20040630
  Receipt Date: 20040617
  Transmission Date: 20050107
  Serious: Yes (Hospitalization)
  Sender: FDA-Public Use
  Company Number: 2004041539

PATIENT
  Sex: Male

DRUGS (1)
  1. NEURONTIN [Suspect]
     Indication: NEUROPATHIC PAIN
     Dosage: 600 MG (300 MG, 2 IN 1 D), ORAL
     Route: 048

REACTIONS (2)
  - IMPAIRED INSULIN SECRETION [None]
  - PANCREAS TRANSPLANT [None]
